FAERS Safety Report 4712141-X (Version None)
Quarter: 2005Q3

REPORT INFORMATION
  Report Type: 
  Country: None (occurrence: None)
  Receive Date: 20050712
  Receipt Date: 20041014
  Transmission Date: 20060218
  Serious: Yes (Hospitalization, Other)
  Sender: FDA-Public Use
  Company Number: US-JNJFOC-20040404839

PATIENT
  Sex: Female

DRUGS (15)
  1. DURAGESIC-100 [Suspect]
     Dosage: (TWO 75 UG/HR PATCHES)
     Route: 062
  2. DURAGESIC-100 [Suspect]
     Route: 062
  3. DURAGESIC-100 [Suspect]
     Route: 062
  4. DURAGESIC-100 [Suspect]
     Route: 062
  5. XYREM [Suspect]
     Indication: SLEEP DISORDER
  6. PROZAC [Concomitant]
     Indication: DEPRESSION
     Route: 049
     Dates: start: 20020101
  7. RELAFEN [Concomitant]
     Indication: PAIN
     Route: 049
     Dates: start: 20020101
  8. PROTONIX [Concomitant]
     Indication: PAIN
     Route: 049
     Dates: start: 20030701
  9. TRILEPTAL [Concomitant]
     Route: 049
     Dates: start: 20030401
  10. TRILEPTAL [Concomitant]
     Indication: FIBROMYALGIA
     Route: 049
     Dates: start: 20030401
  11. PERMAX [Concomitant]
     Indication: FIBROMYALGIA
     Route: 049
     Dates: start: 20020101
  12. TRAZADONE [Concomitant]
     Route: 049
     Dates: start: 20020101
  13. MIRALEX [Concomitant]
     Indication: CONSTIPATION
     Route: 049
     Dates: start: 20020101
  14. OXYCODONE AND ACETAMINOPHEN [Concomitant]
  15. OXYCODONE AND ACETAMINOPHEN [Concomitant]
     Indication: THERAPEUTIC RESPONSE DECREASED

REACTIONS (5)
  - ACCIDENT [None]
  - FATIGUE [None]
  - HYPERHIDROSIS [None]
  - SLEEP DISORDER [None]
  - SPINAL FRACTURE [None]
